FAERS Safety Report 5192759-3 (Version None)
Quarter: 2006Q4

REPORT INFORMATION
  Report Type: 
  Country: None (occurrence: None)
  Receive Date: 20061220
  Receipt Date: 20061204
  Transmission Date: 20070319
  Serious: Yes (Hospitalization)
  Sender: FDA-Public Use
  Company Number: 2006001934

PATIENT
  Age: 87 Year
  Sex: Female

DRUGS (4)
  1. ERLOTINIB / PLACEBO (TABLET) [Suspect]
     Indication: NON-SMALL CELL LUNG CANCER
     Dosage: QD, ORAL
     Route: 048
     Dates: start: 20060713
  2. DEXAMETHASONE TAB [Concomitant]
  3. LEVOTHYROXINE SODIUM [Concomitant]
  4. AMITRIPTYLINE HCL [Concomitant]

REACTIONS (2)
  - ILIAC ARTERY OCCLUSION [None]
  - PERIPHERAL ISCHAEMIA [None]
